FAERS Safety Report 12831075 (Version 1)
Quarter: 2016Q4

REPORT INFORMATION
  Report Type: Spontaneous
  Country: GB (occurrence: GB)
  Receive Date: 20161007
  Receipt Date: 20161007
  Transmission Date: 20170207
  Serious: Yes (Death, Other)
  Sender: FDA-Public Use
  Company Number: GB-BAUSCH-BL-2016-024650

PATIENT
  Age: 18 Year
  Sex: Female

DRUGS (7)
  1. CICLOSPORIN [Suspect]
     Active Substance: CYCLOSPORINE
     Indication: POLYARTHRITIS
     Route: 065
  2. METHOTREXATE. [Suspect]
     Active Substance: METHOTREXATE
     Indication: POLYARTHRITIS
     Route: 065
  3. INFLIXIMAB [Suspect]
     Active Substance: INFLIXIMAB
     Indication: POLYARTHRITIS
     Route: 065
  4. PREDNISOLONE. [Suspect]
     Active Substance: PREDNISOLONE
     Indication: POLYARTHRITIS
     Route: 065
  5. LEFLUNOMIDE. [Suspect]
     Active Substance: LEFLUNOMIDE
     Indication: POLYARTHRITIS
     Route: 065
  6. ETANERCEPT [Suspect]
     Active Substance: ETANERCEPT
     Indication: POLYARTHRITIS
     Route: 065
  7. ANAKINRA [Suspect]
     Active Substance: ANAKINRA
     Indication: POLYARTHRITIS
     Route: 065

REACTIONS (6)
  - Bacterial sepsis [Fatal]
  - Aspergillus infection [Fatal]
  - Multiple organ dysfunction syndrome [Fatal]
  - Bone marrow failure [Fatal]
  - Adenovirus infection [Fatal]
  - Epstein-Barr virus infection [Fatal]
